FAERS Safety Report 10156955 (Version 1)
Quarter: 2014Q2

REPORT INFORMATION
  Report Type: Spontaneous
  Country: DK (occurrence: DK)
  Receive Date: 20140507
  Receipt Date: 20140507
  Transmission Date: 20141212
  Serious: Yes (Life-Threatening)
  Sender: FDA-Public Use
  Company Number: DK-ROCHE-1395551

PATIENT
  Age: 76 Year
  Sex: Female

DRUGS (7)
  1. MABTHERA [Suspect]
     Indication: DIFFUSE LARGE B-CELL LYMPHOMA
     Route: 042
     Dates: start: 2011, end: 20140204
  2. ALENDRONAT [Concomitant]
     Indication: SPINAL COMPRESSION FRACTURE
     Dosage: REPORTED AS ALENDRONAT ^ARROW^
     Route: 065
  3. CONTALGIN [Concomitant]
     Indication: BACK PAIN
     Route: 065
  4. MOTILIUM [Concomitant]
     Indication: CONSTIPATION
     Route: 065
  5. NORITREN [Concomitant]
     Indication: PAIN
     Route: 065
  6. SIRDALUD [Concomitant]
     Indication: MUSCLE SPASMS
     Dosage: REPORTED AS SIRDALUD RETARD
     Route: 065
  7. ZELITREX [Concomitant]
     Indication: HERPES SIMPLEX
     Route: 065

REACTIONS (1)
  - Malignant melanoma [Not Recovered/Not Resolved]
